FAERS Safety Report 17537508 (Version 1)
Quarter: 2020Q1

REPORT INFORMATION
  Report Type: Spontaneous
  Country: US (occurrence: US)
  Receive Date: 20200304
  Receipt Date: 20200304
  Transmission Date: 20200409
  Serious: Yes (Disabling, Other)
  Sender: FDA-Public Use
  Company Number: None

PATIENT
  Age: 57 Year
  Sex: Male
  Weight: 136.08 kg

DRUGS (33)
  1. VIT D [Concomitant]
     Active Substance: VITAMIN D NOS
  2. TOPIRAMATE. [Concomitant]
     Active Substance: TOPIRAMATE
  3. CINNAMON. [Concomitant]
     Active Substance: CINNAMON
  4. TYLENOL [Concomitant]
     Active Substance: ACETAMINOPHEN
  5. DESLORATADINE. [Concomitant]
     Active Substance: DESLORATADINE
  6. DOXYCYCLINE HYCLATE. [Concomitant]
     Active Substance: DOXYCYCLINE HYCLATE
  7. FLUTICASONE PROPPIONATE [Concomitant]
  8. HUMALOG [Concomitant]
     Active Substance: INSULIN LISPRO
  9. METFORMIN HCL [Concomitant]
     Active Substance: METFORMIN HYDROCHLORIDE
  10. BIPAP [Concomitant]
     Active Substance: DEVICE
  11. DESMOPRESSIN ACETATE. [Concomitant]
     Active Substance: DESMOPRESSIN ACETATE
  12. TESTOSTERONE CYP [Concomitant]
     Active Substance: TESTOSTERONE CYPIONATE
  13. ULTRAM/TRAMADOL [Concomitant]
  14. TALTZ [Suspect]
     Active Substance: IXEKIZUMAB
     Indication: PSORIATIC ARTHROPATHY
     Dosage: ?          QUANTITY:1 DF DOSAGE FORM;?
     Dates: start: 20200127, end: 20200127
  15. BAYER LO DOSE [Concomitant]
  16. LOSARTAN. [Concomitant]
     Active Substance: LOSARTAN
  17. PRILOSEC [Concomitant]
     Active Substance: OMEPRAZOLE MAGNESIUM
  18. TOBRAMYC-DEXAMTHSONE [Concomitant]
  19. ALEVE [Concomitant]
     Active Substance: NAPROXEN SODIUM
  20. ATORVASTATTIN [Concomitant]
  21. LASIV/FUROSEMIDE [Concomitant]
  22. PREDNISONE. [Concomitant]
     Active Substance: PREDNISONE
  23. CENTRUM SILVER [Concomitant]
     Active Substance: MINERALS\VITAMINS
  24. CARVEDILOL. [Concomitant]
     Active Substance: CARVEDILOL
  25. FREESTATE LIBRE  SENSOR [Concomitant]
  26. JANUVIA [Concomitant]
     Active Substance: SITAGLIPTIN PHOSPHATE
  27. MODAFINIL/PROVIGIL [Concomitant]
  28. SYNTHROID [Concomitant]
     Active Substance: LEVOTHYROXINE SODIUM
  29. TRIAMCINOLONE ACETONIDE. [Concomitant]
     Active Substance: TRIAMCINOLONE ACETONIDE
  30. CYCLOBENZAPRINE HCL [Concomitant]
     Active Substance: CYCLOBENZAPRINE HYDROCHLORIDE
  31. DULOXETINE HCL [Concomitant]
     Active Substance: DULOXETINE HYDROCHLORIDE
  32. MONTELUKAST SODIUM. [Concomitant]
     Active Substance: MONTELUKAST SODIUM
  33. TOUJEO [Concomitant]
     Active Substance: INSULIN GLARGINE

REACTIONS (3)
  - Vertigo [None]
  - Gait disturbance [None]
  - Dyskinesia [None]

NARRATIVE: CASE EVENT DATE: 20200127
